FAERS Safety Report 9409782 (Version 1)
Quarter: 2013Q3

REPORT INFORMATION
  Report Type: Spontaneous
  Country: CN (occurrence: CN)
  Receive Date: 20130719
  Receipt Date: 20130719
  Transmission Date: 20140515
  Serious: Yes (Hospitalization)
  Sender: FDA-Public Use
  Company Number: CN-ASTELLAS-2013JP007664

PATIENT
  Age: 43 Year
  Sex: Female
  Weight: 44.5 kg

DRUGS (4)
  1. PROGRAF [Suspect]
     Indication: RENAL TRANSPLANT
     Dosage: UNK
     Route: 048
     Dates: start: 20130701
  2. ANTILYMPHOCYTE IMMUNOGLOBULIN (RABBIT) [Suspect]
     Indication: RENAL TRANSPLANT
     Dosage: 100 MG, UID/QD
     Route: 042
     Dates: start: 20130626, end: 20130630
  3. CELLCEPT                           /01275102/ [Concomitant]
     Indication: RENAL TRANSPLANT
     Dosage: UNK
     Route: 065
     Dates: start: 20130630
  4. CORTICOSTEROID NOS [Concomitant]
     Indication: RENAL TRANSPLANT
     Dosage: UNK
     Route: 065

REACTIONS (4)
  - Drug ineffective [Unknown]
  - Transplant rejection [Not Recovered/Not Resolved]
  - White blood cell count increased [Unknown]
  - Urine output decreased [Unknown]
